FAERS Safety Report 24874826 (Version 9)
Quarter: 2025Q4

REPORT INFORMATION
  Report Type: Report from Study
  Country: CA (occurrence: CA)
  Receive Date: 20250122
  Receipt Date: 20251104
  Transmission Date: 20260117
  Serious: Yes (Hospitalization, Other)
  Sender: IPSEN BIOPHARMACEUTICALS, INC.
  Company Number: CA-IPSEN Group, Research and Development-2024-15502

PATIENT
  Age: 82 Year
  Sex: Female
  Weight: 60.8 kg

DRUGS (16)
  1. LANREOTIDE ACETATE [Suspect]
     Active Substance: LANREOTIDE ACETATE
     Indication: Gastroenteropancreatic neuroendocrine tumour disease
     Dosage: DEEP SUBCUTANEOUS
     Route: 058
     Dates: start: 20240704
  2. LANREOTIDE ACETATE [Suspect]
     Active Substance: LANREOTIDE ACETATE
     Route: 058
     Dates: start: 20251002
  3. ASPIRIN [Concomitant]
     Active Substance: ASPIRIN
  4. VITAMIN C [Concomitant]
     Active Substance: ASCORBIC ACID
  5. FERRITIN [Concomitant]
     Active Substance: FERRITIN
  6. VITAMIN D3 [Concomitant]
     Active Substance: CHOLECALCIFEROL
  7. JARDIANCE [Concomitant]
     Active Substance: EMPAGLIFLOZIN
  8. TRESIBA [Concomitant]
     Active Substance: INSULIN DEGLUDEC
  9. TELMISARTAN [Concomitant]
     Active Substance: TELMISARTAN
  10. ROSUVASTATIN [Concomitant]
     Active Substance: ROSUVASTATIN
  11. SYNTHROID [Concomitant]
     Active Substance: LEVOTHYROXINE SODIUM
  12. SOLIFENACIN [Concomitant]
     Active Substance: SOLIFENACIN
  13. RISEDRONATE SODIUM [Concomitant]
     Active Substance: RISEDRONATE SODIUM
  14. PANTOPRAZOLE [Concomitant]
     Active Substance: PANTOPRAZOLE
  15. METFORMIN [Concomitant]
     Active Substance: METFORMIN HYDROCHLORIDE
     Dates: start: 20240626
  16. EPREX [Concomitant]
     Active Substance: ERYTHROPOIETIN

REACTIONS (22)
  - Fall [Unknown]
  - Fall [Unknown]
  - Delirium [Recovered/Resolved]
  - Urinary tract infection [Unknown]
  - Asthenia [Not Recovered/Not Resolved]
  - Confusional state [Recovered/Resolved]
  - Pyrexia [Unknown]
  - Vomiting [Recovered/Resolved]
  - Head injury [Unknown]
  - Arthralgia [Unknown]
  - Arthralgia [Unknown]
  - Limb injury [Recovering/Resolving]
  - Contusion [Recovering/Resolving]
  - Blood pressure increased [Not Recovered/Not Resolved]
  - Injection site pain [Unknown]
  - Pain in extremity [Unknown]
  - Head injury [Unknown]
  - Contusion [Unknown]
  - Contusion [Unknown]
  - Oedema peripheral [Not Recovered/Not Resolved]
  - Urinary tract infection [Recovered/Resolved]
  - Memory impairment [Unknown]

NARRATIVE: CASE EVENT DATE: 20240704
